FAERS Safety Report 21027441 (Version 1)
Quarter: 2022Q2

REPORT INFORMATION
  Report Type: Spontaneous
  Country: SI (occurrence: SI)
  Receive Date: 20220630
  Receipt Date: 20220630
  Transmission Date: 20220720
  Serious: Yes (Other)
  Sender: FDA-Public Use
  Company Number: SI-PFIZER INC-202200828418

PATIENT
  Age: 48 Year
  Sex: Male

DRUGS (3)
  1. APIXABAN [Suspect]
     Active Substance: APIXABAN
     Indication: Anticoagulant therapy
     Dosage: 20 MILLIGRAM, QD (10 MG, 2X/DAY FOR 7 DAYS)
     Route: 065
  2. LACOSAMIDE [Suspect]
     Active Substance: LACOSAMIDE
     Indication: Epilepsy
     Dosage: 200 MILLIGRAM, QD (100 MG, 2X/DAY)
     Route: 065
  3. DALTEPARIN SODIUM [Suspect]
     Active Substance: DALTEPARIN SODIUM
     Indication: Product used for unknown indication
     Dosage: UNK (IN THERAPEUTIC DOSE)
     Route: 065

REACTIONS (4)
  - Hypercoagulation [Unknown]
  - Intentional product use issue [Unknown]
  - Disturbance in attention [Unknown]
  - Fatigue [Unknown]
